FAERS Safety Report 5374270-X (Version None)
Quarter: 2007Q2

REPORT INFORMATION
  Report Type: 
  Country: None (occurrence: None)
  Receive Date: 20070629
  Receipt Date: 20070402
  Transmission Date: 20071010
  Serious: Yes (Hospitalization)
  Sender: FDA-Public Use
  Company Number: CA-ROCHE-303133

PATIENT
  Age: 39 Year
  Sex: Female
  Weight: 60.5 kg

DRUGS (5)
  1. PEG-INTERFERON ALFA 2A (RO 25-8310) [Suspect]
     Dosage: FORM REPORTED AS VIAL/PFS.
     Route: 058
     Dates: start: 20011022, end: 20020922
  2. RIBAVIRIN [Suspect]
     Route: 048
     Dates: start: 20011022, end: 20011205
  3. RIBAVIRIN [Suspect]
     Dosage: 200 MG IN AM, 200 MG IN PM.
     Route: 048
     Dates: start: 20020107, end: 20020929
  4. ZOLOFT [Concomitant]
     Indication: DEPRESSION
     Dates: start: 20011101
  5. IBUPRIN [Concomitant]

REACTIONS (2)
  - GESTATIONAL DIABETES [None]
  - VAGINAL HAEMORRHAGE [None]
